FAERS Safety Report 7387154-2 (Version None)
Quarter: 2011Q1

REPORT INFORMATION
  Report Type: 
  Country: None (occurrence: None)
  Receive Date: 20110331
  Receipt Date: 20110325
  Transmission Date: 20110831
  Serious: Yes (Hospitalization)
  Sender: FDA-Public Use
  Company Number: A0920079A

PATIENT
  Age: 84 Year
  Sex: Male

DRUGS (7)
  1. LEVOTHYROXINE SODIUM [Concomitant]
  2. ASPIRIN [Concomitant]
  3. TIMOPTIC [Concomitant]
  4. GLIPIZIDE [Concomitant]
  5. OMEPRAZOLE [Concomitant]
  6. HYDROCHLOROTHIAZDE TAB [Concomitant]
  7. AVANDIA [Suspect]
     Route: 048
     Dates: end: 20100101

REACTIONS (3)
  - MYOCARDIAL INFARCTION [None]
  - INFLUENZA LIKE ILLNESS [None]
  - ASTHENIA [None]
